FAERS Safety Report 9748772 (Version 1)
Quarter: 2013Q4

REPORT INFORMATION
  Report Type: Spontaneous
  Country: NL (occurrence: NL)
  Receive Date: 20131212
  Receipt Date: 20131212
  Transmission Date: 20140711
  Serious: Yes (Life-Threatening)
  Sender: FDA-Public Use
  Company Number: NL-SA-2013SA126518

PATIENT
  Age: 20 Year
  Sex: Male
  Weight: 65 kg

DRUGS (2)
  1. ZOLPIDEM [Suspect]
     Indication: SLEEP DISORDER
     Dosage: 1 DD 1
     Route: 048
     Dates: start: 20131201, end: 20131201
  2. VALPROIC ACID [Concomitant]
     Dosage: DOSE: 1 DD 2.5?STRENGTH: 300 MG
     Dates: start: 20130701

REACTIONS (2)
  - Mania [Recovering/Resolving]
  - Hallucination [Recovering/Resolving]
